FAERS Safety Report 5120683-0 (Version None)
Quarter: 2006Q4

REPORT INFORMATION
  Report Type: 
  Country: None (occurrence: None)
  Receive Date: 20061004
  Receipt Date: 20060928
  Transmission Date: 20070319
  Serious: Yes (Hospitalization)
  Sender: FDA-Public Use
  Company Number: FR-BOEHRINGER INGELHEIM PHARMACEUTICALS, INC.-2006-FF-00955FF

PATIENT
  Sex: Male

DRUGS (10)
  1. SIFROL [Suspect]
     Indication: PARKINSON'S DISEASE
     Route: 048
     Dates: start: 20060626, end: 20060711
  2. MODOPAR [Suspect]
     Indication: PARKINSON'S DISEASE
     Route: 048
     Dates: start: 20060626, end: 20060711
  3. CERIS [Concomitant]
  4. STABLON [Concomitant]
  5. THERALENE [Concomitant]
  6. LEXOMIL [Concomitant]
  7. PIASCLEDINE [Concomitant]
  8. SOLU-MEDROL [Concomitant]
  9. TROVOLOL [Concomitant]
     Dates: start: 20060626
  10. ARTANE [Concomitant]
     Dates: start: 20060626

REACTIONS (4)
  - CONDITION AGGRAVATED [None]
  - DELIRIUM [None]
  - HALLUCINATION [None]
  - SLEEP DISORDER [None]
